FAERS Safety Report 16700099 (Version 4)
Quarter: 2019Q3

REPORT INFORMATION
  Report Type: Spontaneous
  Country: TW (occurrence: TW)
  Receive Date: 20190813
  Receipt Date: 20190820
  Transmission Date: 20191004
  Serious: Yes (Other)
  Sender: FDA-Public Use
  Company Number: PHHY2019TW184467

PATIENT
  Age: 5 Year
  Sex: Male

DRUGS (8)
  1. NEORAL [Suspect]
     Active Substance: CYCLOSPORINE
     Indication: ALLOGENIC STEM CELL TRANSPLANTATION
     Dosage: 2.8 MG/KG, QD
     Route: 048
     Dates: start: 20150309
  2. FLUDARABINE [Concomitant]
     Active Substance: FLUDARABINE PHOSPHATE
     Indication: BONE MARROW CONDITIONING REGIMEN
     Dosage: 30 MG/M2, QD (FROM DAY -8 TO DAY -3)
     Route: 065
  3. ALEMTUZUMAB [Concomitant]
     Active Substance: ALEMTUZUMAB
     Indication: BONE MARROW CONDITIONING REGIMEN
     Dosage: 1 MG/KG, UNK (FROM DAY -10 TO DAY -6)
     Route: 065
  4. NEORAL [Suspect]
     Active Substance: CYCLOSPORINE
     Indication: PROPHYLAXIS AGAINST GRAFT VERSUS HOST DISEASE
  5. MYCOPHENOLATE MOFETIL. [Suspect]
     Active Substance: MYCOPHENOLATE MOFETIL
     Indication: ALLOGENIC STEM CELL TRANSPLANTATION
     Route: 065
  6. THIAMINE. [Concomitant]
     Active Substance: THIAMINE
     Indication: WERNICKE^S ENCEPHALOPATHY
     Route: 065
  7. GANCICLOVIR. [Concomitant]
     Active Substance: GANCICLOVIR
     Indication: PRODUCT USED FOR UNKNOWN INDICATION
     Dosage: UNK
     Route: 065
  8. MYCOPHENOLATE MOFETIL. [Suspect]
     Active Substance: MYCOPHENOLATE MOFETIL
     Indication: PROPHYLAXIS AGAINST GRAFT VERSUS HOST DISEASE

REACTIONS (21)
  - Cytomegalovirus infection [Unknown]
  - Gastroenteritis salmonella [Unknown]
  - Concomitant disease aggravated [Unknown]
  - Dysuria [Unknown]
  - Enterocolitis [Unknown]
  - Clostridium difficile infection [Unknown]
  - Urinary tract infection [Unknown]
  - Skin lesion [Unknown]
  - Phimosis [Unknown]
  - Abdominal pain [Unknown]
  - Gastrointestinal inflammation [Recovered/Resolved]
  - Cellulitis [Unknown]
  - Product use in unapproved indication [Unknown]
  - Acute graft versus host disease in skin [Unknown]
  - Device related sepsis [Unknown]
  - Escherichia infection [Unknown]
  - Erythema [Unknown]
  - Parotitis [Unknown]
  - Mucosal inflammation [Unknown]
  - Pyrexia [Unknown]
  - Diarrhoea [Unknown]

NARRATIVE: CASE EVENT DATE: 20150429
